FAERS Safety Report 12350945 (Version 1)
Quarter: 2016Q2

REPORT INFORMATION
  Report Type: Report from Study
  Country: US (occurrence: US)
  Receive Date: 20160422
  Receipt Date: 20160422
  Transmission Date: 20160815
  Serious: Yes (Hospitalization)
  Sender: FDA-Public Use
  Company Number: US-MALLINCKRODT-T201504069

PATIENT
  Age: 66 Year
  Sex: Female

DRUGS (8)
  1. FENTANYL APOTEX [Suspect]
     Active Substance: FENTANYL
     Dosage: 25 MCG/HR (FREQUENCY NOT PROVIDED)
     Route: 065
     Dates: start: 2016
  2. OXYGEN. [Concomitant]
     Active Substance: OXYGEN
  3. FENTANYL APOTEX [Suspect]
     Active Substance: FENTANYL
     Dosage: 12.5 MCG/HR (FREQUENCY NOT PROVIDED)
     Route: 065
     Dates: start: 201601, end: 2016
  4. REPOSITORY CORTICOTROPIN INJECTION [Suspect]
     Active Substance: CORTICOTROPIN
     Indication: SARCOIDOSIS
     Dosage: 80 UNITS TWICE A WEEK
     Route: 058
     Dates: start: 20150715, end: 201509
  5. REPOSITORY CORTICOTROPIN INJECTION [Suspect]
     Active Substance: CORTICOTROPIN
     Dosage: 80 UNITS TWICE A WEEK
     Route: 058
     Dates: start: 201509, end: 2015
  6. ACETAMINOPHEN\HYDROCODONE BITARTRATE [Suspect]
     Active Substance: ACETAMINOPHEN\HYDROCODONE BITARTRATE
     Indication: PRODUCT USED FOR UNKNOWN INDICATION
     Dosage: 5/325 MG, 3 TIMES DAILY, AS NEEDED (PRN)
     Route: 048
  7. REPOSITORY CORTICOTROPIN INJECTION [Suspect]
     Active Substance: CORTICOTROPIN
     Dosage: 80 UNITS WEEKLY
     Route: 058
     Dates: start: 2015
  8. FENTANYL APOTEX [Suspect]
     Active Substance: FENTANYL
     Indication: PAIN
     Dosage: 50 MCG/HR (FREQUENCY NOT PROVIDED)
     Route: 065

REACTIONS (15)
  - Back injury [Not Recovered/Not Resolved]
  - Nasal congestion [Not Recovered/Not Resolved]
  - Blood glucose increased [Not Recovered/Not Resolved]
  - Epistaxis [Recovered/Resolved]
  - Spinal fracture [Not Recovered/Not Resolved]
  - Rhinorrhoea [Recovered/Resolved]
  - Malaise [Unknown]
  - Inappropriate schedule of drug administration [Unknown]
  - Loss of consciousness [Recovered/Resolved]
  - Herpes zoster [Recovered/Resolved]
  - Pain in extremity [Not Recovered/Not Resolved]
  - Asthenia [Recovered/Resolved]
  - Muscle twitching [Recovered/Resolved]
  - Wound [Recovered/Resolved]
  - Sciatica [Not Recovered/Not Resolved]

NARRATIVE: CASE EVENT DATE: 20150715
